APPROVED DRUG PRODUCT: CALMURID HC
Active Ingredient: HYDROCORTISONE; UREA
Strength: 1%;10%
Dosage Form/Route: CREAM;TOPICAL
Application: A083947 | Product #001
Applicant: PHARMACIA AND UPJOHN CO
Approved: Approved Prior to Jan 1, 1982 | RLD: No | RS: No | Type: DISCN